FAERS Safety Report 17001476 (Version 3)
Quarter: 2020Q1

REPORT INFORMATION
  Report Type: Spontaneous
  Country: JP (occurrence: JP)
  Receive Date: 20191106
  Receipt Date: 20200206
  Transmission Date: 20200409
  Serious: Yes (Death, Hospitalization, Other)
  Sender: FDA-Public Use
  Company Number: JP-009507513-1911JPN000026J

PATIENT
  Age: 65 Year
  Sex: Male
  Weight: 64 kg

DRUGS (11)
  1. KEYTRUDA [Suspect]
     Active Substance: PEMBROLIZUMAB
     Dosage: 200 MILLIGRAM, Q3W
     Route: 041
     Dates: start: 20190918, end: 20190918
  2. SENNOSIDE [Concomitant]
     Active Substance: SENNOSIDES
     Indication: CONSTIPATION
     Dosage: 12 MILLIGRAM / TIME
     Route: 048
     Dates: start: 20190115, end: 20191024
  3. MOBIC [Concomitant]
     Active Substance: MELOXICAM
     Indication: CANCER PAIN
     Dosage: 10 MILLIGRAM / DAY
     Route: 048
     Dates: start: 20190115, end: 20191024
  4. LANSOPRAZOLE OD [Concomitant]
     Active Substance: LANSOPRAZOLE
     Indication: PROPHYLAXIS AGAINST GASTROINTESTINAL ULCER
     Dosage: 15 MILLIGRAM / DAY
     Route: 048
     Dates: start: 20190115, end: 20191024
  5. CARBOPLATIN. [Concomitant]
     Active Substance: CARBOPLATIN
     Indication: NON-SMALL CELL LUNG CANCER
     Dosage: 595 MILLIGRAM, Q3W
     Route: 041
     Dates: start: 20190123, end: 20190416
  6. FENTANYL. [Concomitant]
     Active Substance: FENTANYL
     Indication: CANCER PAIN
     Dosage: 3 MILLIGRAM / DAY
     Dates: start: 20190115, end: 20191024
  7. KEYTRUDA [Suspect]
     Active Substance: PEMBROLIZUMAB
     Indication: NON-SMALL CELL LUNG CANCER
     Dosage: 200 MILLIGRAM, Q3W
     Route: 041
     Dates: start: 20190123, end: 20190327
  8. CALONAL [Concomitant]
     Active Substance: ACETAMINOPHEN
     Indication: CANCER PAIN
     Dosage: 2000 MILLIGRAM / DAY
     Route: 048
     Dates: start: 20190115, end: 20191024
  9. KEYTRUDA [Suspect]
     Active Substance: PEMBROLIZUMAB
     Dosage: 200 MILLIGRAM, Q3W
     Route: 041
     Dates: start: 20190619, end: 20190821
  10. ABRAXANE [Concomitant]
     Active Substance: PACLITAXEL
     Indication: NON-SMALL CELL LUNG CANCER
     Dosage: 176 MILLIGRAM, QW
     Route: 041
     Dates: start: 20190123, end: 20190416
  11. SYMPROIC [Concomitant]
     Active Substance: NALDEMEDINE
     Indication: CONSTIPATION
     Dosage: 0.2 MILLIGRAM / DAY
     Route: 048
     Dates: start: 20190115, end: 20191024

REACTIONS (5)
  - Prostatitis [Recovered/Resolved]
  - Alanine aminotransferase increased [Recovered/Resolved]
  - Interstitial lung disease [Fatal]
  - Aspartate aminotransferase increased [Recovered/Resolved]
  - Immune-mediated enterocolitis [Recovered/Resolved]

NARRATIVE: CASE EVENT DATE: 20190327
